FAERS Safety Report 19781466 (Version 4)
Quarter: 2021Q4

REPORT INFORMATION
  Report Type: Report from Study
  Country: US (occurrence: US)
  Receive Date: 20210902
  Receipt Date: 20211229
  Transmission Date: 20220303
  Serious: Yes (Hospitalization, Other)
  Sender: FDA-Public Use
  Company Number: US-BOEHRINGERINGELHEIM-2020-BI-064384

PATIENT
  Age: 73 Year
  Sex: Male

DRUGS (2)
  1. OFEV [Suspect]
     Active Substance: NINTEDANIB
     Indication: Idiopathic pulmonary fibrosis
     Dosage: 1 CA
     Route: 048
     Dates: start: 20201110
  2. OFEV [Suspect]
     Active Substance: NINTEDANIB
     Indication: Interstitial lung disease

REACTIONS (33)
  - Hypotension [Unknown]
  - Intentional dose omission [Unknown]
  - Cardiac failure congestive [Not Recovered/Not Resolved]
  - Headache [Unknown]
  - Cough [Unknown]
  - Productive cough [Unknown]
  - Exercise tolerance decreased [Unknown]
  - Product dose omission issue [Unknown]
  - Pain [Unknown]
  - Depression [Not Recovered/Not Resolved]
  - Cardiac failure congestive [Unknown]
  - Gastric disorder [Recovered/Resolved]
  - Tension headache [Unknown]
  - Dyspepsia [Not Recovered/Not Resolved]
  - Diarrhoea [Not Recovered/Not Resolved]
  - Anal incontinence [Not Recovered/Not Resolved]
  - Feeding disorder [Not Recovered/Not Resolved]
  - Asthenia [Not Recovered/Not Resolved]
  - Asthenia [Not Recovered/Not Resolved]
  - Skin ulcer [Not Recovered/Not Resolved]
  - Hypophagia [Not Recovered/Not Resolved]
  - Dizziness [Not Recovered/Not Resolved]
  - Asthenia [Unknown]
  - Disturbance in attention [Unknown]
  - Abdominal pain upper [Not Recovered/Not Resolved]
  - Abdominal discomfort [Not Recovered/Not Resolved]
  - Raynaud^s phenomenon [Unknown]
  - Constipation [Unknown]
  - Apathy [Unknown]
  - Oral pain [Unknown]
  - Depression [Unknown]
  - Hypersomnia [Unknown]
  - Product dose omission in error [Not Recovered/Not Resolved]

NARRATIVE: CASE EVENT DATE: 20210801
